FAERS Safety Report 18822352 (Version 1)
Quarter: 2021Q1

REPORT INFORMATION
  Report Type: Spontaneous
  Country: US (occurrence: US)
  Receive Date: 20210202
  Receipt Date: 20210202
  Transmission Date: 20210419
  Serious: Yes (Other)
  Sender: FDA-Public Use
  Company Number: None

PATIENT
  Age: 47 Year
  Sex: Female
  Weight: 83.8 kg

DRUGS (1)
  1. VENOFER [Suspect]
     Active Substance: IRON SUCROSE
     Indication: IRON DEFICIENCY ANAEMIA
     Dosage: ?          OTHER FREQUENCY:MWF X 5 DOSES;?
     Route: 042
     Dates: start: 20201221, end: 20201221

REACTIONS (3)
  - Dyspnoea [None]
  - Palpitations [None]
  - Feeling hot [None]

NARRATIVE: CASE EVENT DATE: 20201221
